FAERS Safety Report 18545414 (Version 1)
Quarter: 2020Q4

REPORT INFORMATION
  Report Type: Other
  Country: GB (occurrence: GB)
  Receive Date: 20201125
  Receipt Date: 20201125
  Transmission Date: 20210114
  Serious: Yes (Other)
  Sender: FDA-Public Use
  Company Number: GB-ROCHE-2718813

PATIENT

DRUGS (2)
  1. TOCILIZUMAB. [Suspect]
     Active Substance: TOCILIZUMAB
     Indication: RHEUMATOID ARTHRITIS
     Route: 042
  2. SARILUMAB [Suspect]
     Active Substance: SARILUMAB
     Indication: RHEUMATOID ARTHRITIS
     Route: 058

REACTIONS (8)
  - Tuberculosis [Unknown]
  - Anaphylactic reaction [Unknown]
  - Skin cancer [Unknown]
  - Infection [Unknown]
  - Gastrointestinal perforation [Unknown]
  - Cervix carcinoma [Unknown]
  - Colorectal cancer [Unknown]
  - Neutropenia [Unknown]
